FAERS Safety Report 8361787-9 (Version None)
Quarter: 2012Q2

REPORT INFORMATION
  Report Type: 
  Country: None (occurrence: None)
  Receive Date: 20120515
  Receipt Date: 20120412
  Transmission Date: 20120825
  Serious: Yes (Other)
  Sender: FDA-Public Use
  Company Number: US-GLAXOSMITHKLINE-A0973845A

PATIENT
  Age: 60 Year
  Sex: Female
  Weight: 81.8 kg

DRUGS (5)
  1. LOVAZA [Suspect]
     Indication: PRODUCT USED FOR UNKNOWN INDICATION
     Dosage: 4G UNKNOWN
     Route: 048
     Dates: start: 20091220, end: 20100101
  2. CEFTIN [Concomitant]
     Dosage: 500MG TWICE PER DAY
     Route: 048
  3. LOVAZA [Suspect]
     Indication: PRODUCT USED FOR UNKNOWN INDICATION
     Dates: end: 20100601
  4. MACROBID [Concomitant]
     Dosage: 100MG TWICE PER DAY
  5. PREDNISONE [Concomitant]

REACTIONS (10)
  - BILIARY DILATATION [None]
  - BILE DUCT STONE [None]
  - GALLBLADDER PAIN [None]
  - URINARY TRACT INFECTION [None]
  - CHOLELITHIASIS [None]
  - CHOLECYSTECTOMY [None]
  - LIVER FUNCTION TEST ABNORMAL [None]
  - GALLBLADDER OEDEMA [None]
  - RASH [None]
  - BILIARY TRACT DISORDER [None]
